FAERS Safety Report 7921121 (Version 3)
Quarter: 2013Q1

REPORT INFORMATION
  Report Type: Spontaneous
  Country: US (occurrence: None)
  Receive Date: 20110408
  Receipt Date: 20121015
  Transmission Date: 20140127
  Serious: Yes (Disabling, Other)
  Sender: FDA-Public Use
  Company Number: 2011MA003058

PATIENT
  Sex: Male
  Weight: 83.92 kg

DRUGS (37)
  1. METOCLOPRAMIDE [Suspect]
     Indication: NAUSEA
     Route: 048
     Dates: start: 20030503, end: 20101215
  2. METOCLOPRAMIDE [Suspect]
     Indication: GASTRIC DISORDER
     Route: 048
     Dates: start: 20030503, end: 20101215
  3. LEXAPRO [Concomitant]
  4. ACIPHEX [Concomitant]
  5. ACYCLOVIR [Concomitant]
  6. ACTONEL [Concomitant]
  7. ALENDRONATE [Concomitant]
  8. ASMANEX [Concomitant]
  9. BACLOFEN [Concomitant]
  10. BUSPIRONE [Concomitant]
  11. CARBAMAZEPINE [Concomitant]
  12. CLARINEX [Concomitant]
  13. DIAZEPAM [Concomitant]
  14. FLOMAX [Concomitant]
  15. FLUTICASONE [Concomitant]
  16. FOLIC ACID [Concomitant]
  17. HYDROCHLOROTHIAZIDE [Concomitant]
  18. IBUPROFEN [Concomitant]
  19. IPRATROPIUM [Concomitant]
  20. LEVAQUIN [Concomitant]
  21. LIPITOR [Concomitant]
  22. NEURONTIN [Concomitant]
  23. OMEPRAZOLE [Concomitant]
  24. OXYCODONE/APAP [Concomitant]
  25. OXYCONTIN [Concomitant]
  26. PANTOPRAZOLE [Concomitant]
  27. PHENYTOIN [Concomitant]
  28. PREDNISONE [Concomitant]
  29. PROMETHAZINE [Concomitant]
  30. PROVENTIL [Concomitant]
  31. PROVIGIL [Concomitant]
  32. STRATTERA [Concomitant]
  33. SUBOXONE [Concomitant]
  34. TIZANIDINE [Concomitant]
  35. TOPROL [Concomitant]
  36. WARFARIN [Concomitant]
  37. ZETIA [Concomitant]

REACTIONS (16)
  - Tardive dyskinesia [None]
  - Akathisia [None]
  - Dystonia [None]
  - Extrapyramidal disorder [None]
  - Tremor [None]
  - Movement disorder [None]
  - Family stress [None]
  - Emotional disorder [None]
  - Economic problem [None]
  - Nausea [None]
  - Tic [None]
  - Gastrooesophageal reflux disease [None]
  - Dyspepsia [None]
  - Cerebrovascular accident [None]
  - Gastrooesophageal reflux disease [None]
  - Joint injury [None]
